FAERS Safety Report 10272343 (Version 1)
Quarter: 2014Q2

REPORT INFORMATION
  Report Type: Spontaneous
  Country: US (occurrence: None)
  Receive Date: 20140630
  Receipt Date: 20140630
  Transmission Date: 20141212
  Serious: Yes (Hospitalization)
  Sender: FDA-Public Use
  Company Number: None

PATIENT
  Age: 46 Year
  Sex: Female
  Weight: 63.5 kg

DRUGS (1)
  1. GAMMAGARD [Suspect]
     Indication: DEMYELINATING POLYNEUROPATHY
     Route: 042

REACTIONS (1)
  - Pulmonary embolism [None]
